FAERS Safety Report 7574204-3 (Version None)
Quarter: 2011Q2

REPORT INFORMATION
  Report Type: 
  Country: None (occurrence: None)
  Receive Date: 20110627
  Receipt Date: 20091122
  Transmission Date: 20111010
  Serious: Yes (Other)
  Sender: FDA-Public Use
  Company Number: US-BAYER-200940319NA

PATIENT
  Age: 75 Year
  Sex: Female
  Weight: 102.2 kg

DRUGS (13)
  1. TRASYLOL [Suspect]
     Indication: CORONARY ARTERY BYPASS
  2. NIPRIDE [Concomitant]
     Dosage: TITRATED
     Route: 042
     Dates: start: 20040420, end: 20040420
  3. AMITRIPTYLINE HCL [Concomitant]
     Dosage: 25MG AT NIGHT
     Route: 048
     Dates: end: 20040419
  4. TOPROL-XL [Concomitant]
     Dosage: 50 MG, QD
     Route: 048
     Dates: end: 20040419
  5. FENTANYL [Concomitant]
     Dosage: UNK
     Route: 042
     Dates: start: 20040420, end: 20040420
  6. VASOPRESSIN [Concomitant]
     Dosage: TITRATED
     Route: 042
     Dates: start: 20040420, end: 20040420
  7. GLUCOVANCE [Concomitant]
     Dosage: 5/550MG DAILY
     Route: 048
  8. HYDROCHLOROTHIAZIDE [Concomitant]
     Dosage: 12.5 MG, QD
     Route: 048
     Dates: start: 20040419
  9. DOPAMINE HCL [Concomitant]
     Dosage: TITRATED
     Route: 042
     Dates: start: 20040420, end: 20040420
  10. ISOSORBIDE MONONITRATE [Concomitant]
     Dosage: 30 MG, BID
     Route: 048
     Dates: end: 20040419
  11. LIDOCAINE [Concomitant]
     Dosage: UNK
     Route: 042
     Dates: start: 20040420, end: 20040420
  12. TRASYLOL [Suspect]
     Indication: MITRAL VALVE REPLACEMENT
     Dosage: 300ML PUMP PRIME
     Route: 042
     Dates: start: 20040420, end: 20040420
  13. ATACAND HCT [Concomitant]
     Dosage: 32 MG, QD
     Dates: start: 20040419

REACTIONS (14)
  - ANAEMIA [None]
  - RENAL FAILURE [None]
  - FEAR [None]
  - UNEVALUABLE EVENT [None]
  - ANHEDONIA [None]
  - ANXIETY [None]
  - RENAL INJURY [None]
  - MEMORY IMPAIRMENT [None]
  - STRESS [None]
  - PAIN [None]
  - RENAL IMPAIRMENT [None]
  - CARDIAC FAILURE [None]
  - EMOTIONAL DISTRESS [None]
  - INJURY [None]
